FAERS Safety Report 25341985 (Version 2)
Quarter: 2025Q2

REPORT INFORMATION
  Report Type: Spontaneous
  Country: CN (occurrence: CN)
  Receive Date: 20250521
  Receipt Date: 20250609
  Transmission Date: 20250716
  Serious: No
  Sender: PFIZER
  Company Number: CN-PFIZER INC-202500103892

PATIENT

DRUGS (1)
  1. PAXLOVID [Suspect]
     Active Substance: NIRMATRELVIR\RITONAVIR
     Indication: COVID-19 treatment
     Dates: start: 20250515

REACTIONS (3)
  - Therapeutic product effect incomplete [Unknown]
  - Off label use [Unknown]
  - Wrong technique in product usage process [Unknown]

NARRATIVE: CASE EVENT DATE: 20250101
